FAERS Safety Report 15383436 (Version 1)
Quarter: 2018Q3

REPORT INFORMATION
  Report Type: Report from Study
  Country: US (occurrence: US)
  Receive Date: 20180913
  Receipt Date: 20180913
  Transmission Date: 20181010
  Serious: Yes (Hospitalization)
  Sender: FDA-Public Use
  Company Number: US-ACTELION-A-NJ2018-176258

PATIENT
  Age: 51 Year
  Sex: Female
  Weight: 53.61 kg

DRUGS (3)
  1. REMODULIN [Concomitant]
     Active Substance: TREPROSTINIL
     Dosage: 38 NG/KG, PER MIN
  2. ADCIRCA [Concomitant]
     Active Substance: TADALAFIL
  3. TRACLEER [Suspect]
     Active Substance: BOSENTAN
     Indication: PULMONARY HYPERTENSION
     Dosage: 125 MG, BID
     Route: 048

REACTIONS (7)
  - Catheter site pruritus [Unknown]
  - Dyspnoea [Unknown]
  - Lung transplant [Unknown]
  - Influenza like illness [Unknown]
  - Nausea [Unknown]
  - Catheter site discharge [Unknown]
  - Headache [Unknown]

NARRATIVE: CASE EVENT DATE: 20180905
